FAERS Safety Report 6288785-3 (Version None)
Quarter: 2009Q3

REPORT INFORMATION
  Report Type: 
  Country: None (occurrence: None)
  Receive Date: 20090729
  Receipt Date: 20090727
  Transmission Date: 20100115
  Serious: Yes (Hospitalization)
  Sender: FDA-Public Use
  Company Number: US-MYLANLABS-2009S1012567

PATIENT
  Age: 83 Year
  Sex: Female
  Weight: 81.65 kg

DRUGS (10)
  1. FENTANYL TRANSDERMAL SYSTEM [Suspect]
     Indication: BACK PAIN
     Dosage: Q72HOURS
     Route: 062
     Dates: start: 20090516, end: 20090520
  2. GABAPENTIN [Concomitant]
  3. LEVOTHYROXINE SODIUM [Concomitant]
  4. LISINOPRIL AND HYDROCHLOROTHIAZIDE [Concomitant]
     Dosage: 20MG/12.5MG - X2/DAY
  5. PREDNISONE [Concomitant]
  6. METOPROLOL [Concomitant]
  7. SIMVASTATIN [Concomitant]
  8. POTASSIUM CHLORIDE [Concomitant]
  9. NEXIUM [Concomitant]
  10. TYLENOL (CAPLET) [Concomitant]

REACTIONS (9)
  - ABDOMINAL DISCOMFORT [None]
  - AMNESIA [None]
  - DECREASED APPETITE [None]
  - DEHYDRATION [None]
  - DISORIENTATION [None]
  - MALAISE [None]
  - NAUSEA [None]
  - VOMITING [None]
  - WEIGHT DECREASED [None]
